FAERS Safety Report 7551768-7 (Version None)
Quarter: 2011Q2

REPORT INFORMATION
  Report Type: 
  Country: None (occurrence: None)
  Receive Date: 20110616
  Receipt Date: 20110601
  Transmission Date: 20111010
  Serious: Yes (Congenital Anomaly)
  Sender: FDA-Public Use
  Company Number: A0931611A

PATIENT
  Sex: Male

DRUGS (1)
  1. PAXIL [Suspect]
     Indication: DEPRESSION
     Dosage: 30MG PER DAY
     Route: 064

REACTIONS (3)
  - CRANIOSYNOSTOSIS [None]
  - DRUG EXPOSURE DURING PREGNANCY [None]
  - SCAPHOCEPHALY [None]
